FAERS Safety Report 20542720 (Version 1)
Quarter: 2022Q1

REPORT INFORMATION
  Report Type: Report from Study
  Country: DO (occurrence: DO)
  Receive Date: 20220302
  Receipt Date: 20220302
  Transmission Date: 20220423
  Serious: Yes (Life-Threatening, Hospitalization)
  Sender: FDA-Public Use
  Company Number: DO-NOVARTISPH-NVSC2022DO049350

PATIENT
  Sex: Male

DRUGS (1)
  1. ELTROMBOPAG OLAMINE [Suspect]
     Active Substance: ELTROMBOPAG OLAMINE
     Indication: Immune thrombocytopenia
     Dosage: 50 MG, QD
     Route: 048
     Dates: start: 20220218

REACTIONS (6)
  - Lung disorder [Unknown]
  - Dengue fever [Unknown]
  - COVID-19 [Unknown]
  - Systemic lupus erythematosus [Unknown]
  - Platelet count abnormal [Unknown]
  - Lumbar puncture [Unknown]
